FAERS Safety Report 5681378-8 (Version None)
Quarter: 2008Q1

REPORT INFORMATION
  Report Type: 
  Country: None (occurrence: None)
  Receive Date: 20080326
  Receipt Date: 20070129
  Transmission Date: 20080703
  Serious: No
  Sender: FDA-Public Use
  Company Number: US-BAYER-US-2007-003425

PATIENT
  Age: 22 Year
  Sex: Female

DRUGS (4)
  1. MIRENA [Suspect]
     Indication: CONTRACEPTION
     Dates: start: 20061116, end: 20070126
  2. NAPROSYN [Concomitant]
  3. CELEXA [Concomitant]
  4. BENZAPLEN [Concomitant]
     Indication: SKIN DISORDER

REACTIONS (1)
  - INTRA-UTERINE CONTRACEPTIVE DEVICE EXPELLED [None]
